FAERS Safety Report 5032657-9 (Version None)
Quarter: 2006Q2

REPORT INFORMATION
  Report Type: 
  Country: None (occurrence: None)
  Receive Date: 20060622
  Receipt Date: 20060613
  Transmission Date: 20061013
  Serious: Yes (Life-Threatening, Other)
  Sender: FDA-Public Use
  Company Number: FR-BRISTOL-MYERS SQUIBB COMPANY-13412341

PATIENT
  Age: 54 Year
  Sex: Female

DRUGS (5)
  1. TAXOL [Suspect]
     Route: 042
     Dates: start: 20020415
  2. ENDOXAN [Suspect]
     Route: 042
     Dates: start: 20031015, end: 20040115
  3. CARBOPLATINE [Suspect]
     Route: 042
     Dates: start: 20020415
  4. CISPLATIN [Suspect]
     Route: 042
     Dates: start: 20031015, end: 20040115
  5. ADRIAMYCIN PFS [Suspect]
     Route: 042
     Dates: start: 20031015, end: 20040115

REACTIONS (2)
  - LEUKAEMIA [None]
  - TREATMENT RELATED SECONDARY MALIGNANCY [None]
